FAERS Safety Report 11976542 (Version 1)
Quarter: 2016Q1

REPORT INFORMATION
  Report Type: Spontaneous
  Country: US (occurrence: None)
  Receive Date: 20160128
  Receipt Date: 20160128
  Transmission Date: 20160526
  Serious: Yes (Disabling)
  Sender: FDA-Public Use
  Company Number: None

PATIENT
  Age: 25 Year
  Sex: Female
  Weight: 81.65 kg

DRUGS (1)
  1. ALBENZA [Suspect]
     Active Substance: ALBENDAZOLE
     Indication: INFECTION PARASITIC
     Route: 048

REACTIONS (5)
  - Product tampering [None]
  - Product taste abnormal [None]
  - Helminthic infection [None]
  - Condition aggravated [None]
  - Vomiting [None]

NARRATIVE: CASE EVENT DATE: 20150101
